FAERS Safety Report 4263782-8 (Version None)
Quarter: 2004Q1

REPORT INFORMATION
  Report Type: 
  Country: None (occurrence: None)
  Receive Date: 20040102
  Receipt Date: 20031230
  Transmission Date: 20041129
  Serious: Yes (Hospitalization, Other)
  Sender: FDA-Public Use
  Company Number: US-JNJFOC-20031200540

PATIENT
  Age: 55 Year
  Sex: Male

DRUGS (7)
  1. DURAGESIC [Suspect]
     Indication: PAIN IN EXTREMITY
     Dosage: 50 UG/HR. 1 IN 72 HOUR, TRANSDERMAL
     Route: 062
     Dates: start: 20031125
  2. MIRTAZAPINE [Suspect]
     Indication: SLEEP DISORDER THERAPY
     Dosage: 30 MG, 1 IN 24 HOUR, ORAL
     Route: 048
     Dates: start: 20031125
  3. ATENOLOL [Concomitant]
  4. NIFEDIPINE [Concomitant]
  5. DIOVAN [Concomitant]
  6. LIPITOR [Concomitant]
  7. VIOXX [Concomitant]

REACTIONS (5)
  - ABNORMAL DREAMS [None]
  - GASTRIC DISORDER [None]
  - LOSS OF CONSCIOUSNESS [None]
  - MEMORY IMPAIRMENT [None]
  - ROAD TRAFFIC ACCIDENT [None]
